FAERS Safety Report 21112759 (Version 1)
Quarter: 2022Q3

REPORT INFORMATION
  Report Type: Spontaneous
  Country: US (occurrence: US)
  Receive Date: 20220721
  Receipt Date: 20220721
  Transmission Date: 20221026
  Serious: Yes (Death, Hospitalization, Other)
  Sender: FDA-Public Use
  Company Number: US-TAKEDA-2022TUS048620

PATIENT
  Age: 83 Year
  Sex: Female

DRUGS (1)
  1. NINLARO [Suspect]
     Active Substance: IXAZOMIB CITRATE
     Indication: Product used for unknown indication
     Dosage: 4 MILLIGRAM
     Route: 048

REACTIONS (15)
  - Death [Fatal]
  - Bone lesion [Unknown]
  - Sepsis [Unknown]
  - Neuropathy peripheral [Unknown]
  - Confusional state [Unknown]
  - Bone pain [Unknown]
  - Tremor [Unknown]
  - Illness [Not Recovered/Not Resolved]
  - Head discomfort [Unknown]
  - Chest pain [Unknown]
  - Arthralgia [Unknown]
  - Axillary pain [Unknown]
  - Asthenia [Unknown]
  - Back pain [Unknown]
  - Nausea [Unknown]

NARRATIVE: CASE EVENT DATE: 20220703
